FAERS Safety Report 5096733-7 (Version None)
Quarter: 2006Q3

REPORT INFORMATION
  Report Type: 
  Country: None (occurrence: None)
  Receive Date: 20060831
  Receipt Date: 20060822
  Transmission Date: 20061208
  Serious: Yes (Disabling, Other)
  Sender: FDA-Public Use
  Company Number: 2006071245

PATIENT
  Age: 81 Year
  Sex: Female
  Weight: 47 kg

DRUGS (9)
  1. LYRICA [Suspect]
     Indication: NEURALGIA
     Dosage: SEE IMAGE, ORAL
     Route: 048
     Dates: start: 20060322, end: 20060328
  2. LYRICA [Suspect]
     Indication: NEURALGIA
     Dosage: SEE IMAGE, ORAL
     Route: 048
     Dates: start: 20060329, end: 20060404
  3. LYRICA [Suspect]
     Indication: NEURALGIA
     Dosage: SEE IMAGE, ORAL
     Route: 048
     Dates: start: 20060405, end: 20060412
  4. TRYPTIZOL (AMITRIPTYLINE HYDROCHLORIDE) [Concomitant]
  5. OMEPRAZOLE [Concomitant]
  6. CLOPIDOGREL [Concomitant]
  7. ACETAMINOPHEN [Concomitant]
  8. PAROXETINE [Concomitant]
  9. BLOPRESS (CANDESARTAN CILEXETIL) [Concomitant]

REACTIONS (5)
  - AGITATION [None]
  - CONFUSIONAL STATE [None]
  - DISORIENTATION [None]
  - DRUG INEFFECTIVE [None]
  - HALLUCINATION [None]
